FAERS Safety Report 9759567 (Version 1)
Quarter: 2013Q4

REPORT INFORMATION
  Report Type: Spontaneous
  Country: IT (occurrence: IT)
  Receive Date: 20131216
  Receipt Date: 20131216
  Transmission Date: 20140711
  Serious: Yes (Other)
  Sender: FDA-Public Use
  Company Number: IT-ASTRAZENECA-2013SE89354

PATIENT
  Age: 11121 Day
  Sex: Female
  Weight: 110 kg

DRUGS (2)
  1. TENORMIN [Suspect]
     Indication: HYPERTENSION
     Route: 048
     Dates: start: 20121120, end: 20131128
  2. TRIATEC [Concomitant]
     Route: 048

REACTIONS (1)
  - Bronchostenosis [Recovering/Resolving]
